FAERS Safety Report 10197205 (Version 2)
Quarter: 2014Q2

REPORT INFORMATION
  Report Type: Spontaneous
  Country: US (occurrence: US)
  Receive Date: 20140527
  Receipt Date: 20140627
  Transmission Date: 20141212
  Serious: Yes (Hospitalization)
  Sender: FDA-Public Use
  Company Number: US-GLAXOSMITHKLINE-A1074015A

PATIENT
  Sex: Female

DRUGS (7)
  1. ADVAIR [Suspect]
     Indication: ASTHMA
     Dosage: 1PUFF TWICE PER DAY
     Route: 055
  2. LISINOPRIL [Concomitant]
  3. ASPIRIN [Concomitant]
  4. CARTIA XT [Concomitant]
  5. LANSOPRAZOLE [Concomitant]
  6. ATORVASTATIN [Concomitant]
  7. ALLOPURINOL [Concomitant]

REACTIONS (7)
  - Convulsion [Not Recovered/Not Resolved]
  - Diverticulitis [Not Recovered/Not Resolved]
  - Cardiac disorder [Not Recovered/Not Resolved]
  - Hypertension [Not Recovered/Not Resolved]
  - Gout [Not Recovered/Not Resolved]
  - Urinary tract infection [Unknown]
  - Rehabilitation therapy [Unknown]
